FAERS Safety Report 8765949 (Version 3)
Quarter: 2013Q1

REPORT INFORMATION
  Report Type: Spontaneous
  Country: US (occurrence: US)
  Receive Date: 20120904
  Receipt Date: 20130306
  Transmission Date: 20140127
  Serious: Yes (Other)
  Sender: FDA-Public Use
  Company Number: US-009507513-1208USA010363

PATIENT
  Sex: Male
  Weight: 106.12 kg

DRUGS (3)
  1. PEGINTRON [Suspect]
     Indication: HEPATITIS C
     Dosage: UNK
     Dates: start: 20120405, end: 20121015
  2. RIBAVIRIN [Suspect]
     Indication: HEPATITIS C
     Dosage: UNK
     Dates: start: 20120405, end: 20121015
  3. VICTRELIS [Suspect]
     Indication: HEPATITIS C
     Dosage: UNK
     Dates: start: 20120503, end: 20121015

REACTIONS (10)
  - Weight decreased [Unknown]
  - Diplopia [Unknown]
  - Fatigue [Unknown]
  - Drug dose omission [Unknown]
  - Gastrooesophageal reflux disease [Unknown]
  - Back pain [Unknown]
  - Muscular weakness [Unknown]
  - Visual acuity reduced [Unknown]
  - Blood pressure increased [Unknown]
  - Arthralgia [Unknown]
